FAERS Safety Report 5766515-9 (Version None)
Quarter: 2008Q2

REPORT INFORMATION
  Report Type: 
  Country: None (occurrence: None)
  Receive Date: 20080612
  Receipt Date: 20080530
  Transmission Date: 20081010
  Serious: Yes (Death)
  Sender: FDA-Public Use
  Company Number: ES-ROCHE-568258

PATIENT
  Age: 59 Year
  Sex: Male

DRUGS (4)
  1. CELLCEPT [Suspect]
     Indication: IMMUNOSUPPRESSANT DRUG THERAPY
     Dosage: DOSE,FREQUENCY AND THERAPY START DATES REPORTED AS UNKNOWN.
     Route: 065
  2. CYCLOSPORINE [Suspect]
     Indication: IMMUNOSUPPRESSANT DRUG THERAPY
     Dosage: DOSE,FREQUENCY AND THERAPY DATES REPORTED AS UNKNOWN
     Route: 065
  3. METILPREDNISOLONE [Suspect]
     Indication: IMMUNOSUPPRESSANT DRUG THERAPY
     Dosage: THERAPY DATES, DOSE AND FREQUENCY REPORTED AS UNKNOWN
     Route: 065
  4. BASILIXIMAB [Suspect]
     Indication: IMMUNOSUPPRESSANT DRUG THERAPY
     Dosage: THERAPY DATES, DOSE AND FREQUENCY REPORTED AS UNKNOWN
     Route: 065

REACTIONS (1)
  - OEDEMATOUS PANCREATITIS [None]
